FAERS Safety Report 8861168 (Version 1)
Quarter: 2012Q4

REPORT INFORMATION
  Report Type: 
  Country: US (occurrence: US)
  Receive Date: 20121025
  Receipt Date: 20121025
  Transmission Date: 20130627
  Serious: No
  Sender: FDA-Public Use
  Company Number: US-AMGEN-USASP2012015201

PATIENT
  Age: 74 Year
  Sex: Female
  Weight: 87.98 kg

DRUGS (2)
  1. ENBREL [Suspect]
     Indication: PRODUCT USED FOR UNKNOWN INDICATION
     Dosage: 50 mg, 2 times/wk
     Route: 058
  2. ASA [Concomitant]
     Dosage: 81 mg, UNK

REACTIONS (2)
  - Drug intolerance [Unknown]
  - Urinary tract infection [Unknown]
